FAERS Safety Report 5514123-7 (Version None)
Quarter: 2007Q4

REPORT INFORMATION
  Report Type: 
  Country: None (occurrence: None)
  Receive Date: 20071113
  Receipt Date: 20071109
  Transmission Date: 20080405
  Serious: Yes (Hospitalization)
  Sender: FDA-Public Use
  Company Number: US-BRISTOL-MYERS SQUIBB COMPANY-13977863

PATIENT
  Age: 53 Year
  Sex: Male

DRUGS (2)
  1. CARBOPLATIN [Suspect]
     Indication: SMALL CELL LUNG CANCER EXTENSIVE STAGE
     Dosage: DOSAGE FORM EQUALS AUG. FIRST DOSE 17-SEP-2007 - ONGOING.
     Route: 042
     Dates: start: 20071008, end: 20071008
  2. ABRAXANE [Suspect]
     Indication: SMALL CELL LUNG CANCER EXTENSIVE STAGE
     Dosage: FIRST DOSE 17-SEP-2007 - ONGOING.
     Route: 042
     Dates: start: 20071015, end: 20071015

REACTIONS (2)
  - HAEMATURIA [None]
  - THROMBOCYTOPENIA [None]
